FAERS Safety Report 10404736 (Version 4)
Quarter: 2014Q3

REPORT INFORMATION
  Report Type: Report from Study
  Country: TR (occurrence: TR)
  Receive Date: 20140824
  Receipt Date: 20140919
  Transmission Date: 20150326
  Serious: Yes (Death, Life-Threatening, Hospitalization, Other)
  Sender: FDA-Public Use
  Company Number: TR-009507513-1010USA00085

PATIENT
  Age: 68 Year
  Sex: Female
  Weight: 68 kg

DRUGS (15)
  1. PLACEBO [Suspect]
     Active Substance: UNSPECIFIED INGREDIENT
     Indication: ACUTE CORONARY SYNDROME
     Dosage: UNK
     Route: 048
     Dates: start: 20100702, end: 20100725
  2. INSULIN [Concomitant]
     Active Substance: INSULIN NOS
     Dosage: ACCORDING TO BLOOD SUGAR
     Route: 058
     Dates: start: 20100702, end: 20100727
  3. PLAVIX [Concomitant]
     Active Substance: CLOPIDOGREL BISULFATE
     Dosage: TOTAL DAILY DOSE: 75 MG
     Route: 048
     Dates: start: 20100702, end: 20100727
  4. PULMICORT TURBUHALER [Concomitant]
     Active Substance: BUDESONIDE
     Dosage: TOTAL DAILY DOSE:3*1
     Route: 055
     Dates: start: 20100702, end: 20100727
  5. ASPIRIN. [Concomitant]
     Active Substance: ASPIRIN
     Dosage: TOTAL DAILY DOSE: 100 MG
     Route: 048
     Dates: start: 20100702, end: 20100727
  6. LASIX [Concomitant]
     Active Substance: FUROSEMIDE
     Dosage: TOTAL DAILY DOSE:500 MG/DAY
     Route: 042
     Dates: start: 20100702, end: 20100727
  7. DOBUTAMINE [Concomitant]
     Active Substance: DOBUTAMINE\DOBUTAMINE HYDROCHLORIDE
     Dosage: TOTAL DAILY DOSE: 600 MICROGRAM/MIN
     Route: 042
     Dates: start: 20100702, end: 20100727
  8. DOPAMINE HYDROCHLORIDE. [Concomitant]
     Active Substance: DOPAMINE HYDROCHLORIDE
     Dosage: TOTAL DAILY DOSE: 500 MICROGRAM/MIN
     Route: 042
     Dates: start: 20100702, end: 20100727
  9. EZETIMIBE AND SIMVASTATIN [Suspect]
     Active Substance: EZETIMIBE\SIMVASTATIN
     Indication: ACUTE CORONARY SYNDROME
     Dosage: 10-40 MG, QD
     Route: 048
     Dates: start: 20100702, end: 20100725
  10. ROCEPHIN [Concomitant]
     Active Substance: CEFTRIAXONE SODIUM
     Dosage: TOTAL DAILY DOSE:2G
     Route: 030
     Dates: start: 20100702, end: 20100727
  11. KABIVEN [Concomitant]
     Active Substance: AMINO ACIDS\ANHYDROUS DEXTROSE\CALCIUM CHLORIDE\MAGNESIUM SULFATE HEPTAHYDRATE\POTASSIUM CHLORIDE\SODIUM ACETATE\SODIUM GLYCEROPHOSPHATE ANHYDROUS\SOYBEAN OIL
     Dosage: TOTAL DAILY DOSE: 3*1
     Route: 048
     Dates: start: 20100702, end: 20100727
  12. EPINEPHRINE. [Concomitant]
     Active Substance: EPINEPHRINE
     Dosage: TOTAL DAILY DOSE:0.8 MG/HR
     Route: 042
     Dates: start: 20100702, end: 20100727
  13. NAC [Concomitant]
     Dosage: TOTAL DAILY DOSE:1200MG
     Route: 048
     Dates: start: 20100702, end: 20100727
  14. SODIUM BICARBONATE. [Concomitant]
     Active Substance: SODIUM BICARBONATE
     Dosage: TOTAL DAILY DOSE: 10 AMPUL/HR
     Route: 042
     Dates: start: 20100702, end: 20100727
  15. COMBIVENT [Concomitant]
     Active Substance: ALBUTEROL SULFATE\IPRATROPIUM BROMIDE
     Dosage: TOTAL DAILY DOSE: 3*1
     Route: 048
     Dates: start: 20100702, end: 20100727

REACTIONS (2)
  - Rhabdomyolysis [Fatal]
  - Respiratory arrest [Recovered/Resolved]

NARRATIVE: CASE EVENT DATE: 20100707
